FAERS Safety Report 6305825-3 (Version None)
Quarter: 2009Q3

REPORT INFORMATION
  Report Type: 
  Country: None (occurrence: None)
  Receive Date: 20090812
  Receipt Date: 20070517
  Transmission Date: 20100115
  Serious: Yes (Other)
  Sender: FDA-Public Use
  Company Number: US-ASTRAZENECA-2006UW08345

PATIENT
  Age: 42 Year
  Sex: Female
  Weight: 103.9 kg

DRUGS (5)
  1. SEROQUEL [Suspect]
     Indication: DEPRESSION
     Dosage: 100-400 MG
     Route: 048
     Dates: start: 20041014
  2. SEROQUEL [Suspect]
     Indication: INSOMNIA
     Dosage: 100-400 MG
     Route: 048
     Dates: start: 20041014
  3. ABILIFY [Concomitant]
  4. RISPERDAL [Concomitant]
  5. WELLBUTRIN [Concomitant]
     Dosage: 100-300 MG
     Route: 048
     Dates: start: 20031204

REACTIONS (4)
  - DIABETES MELLITUS [None]
  - DIABETIC NEUROPATHY [None]
  - HYPOGLYCAEMIA [None]
  - TYPE 2 DIABETES MELLITUS [None]
